FAERS Safety Report 4527235-1 (Version None)
Quarter: 2004Q4

REPORT INFORMATION
  Report Type: 
  Country: None (occurrence: None)
  Receive Date: 20041215
  Receipt Date: 20041209
  Transmission Date: 20050328
  Serious: Yes (Other)
  Sender: FDA-Public Use
  Company Number: PHEH2004US13190

PATIENT
  Sex: Male

DRUGS (1)
  1. LAMISIL [Suspect]
     Route: 048

REACTIONS (4)
  - EAR INJURY [None]
  - FALL [None]
  - LOSS OF CONSCIOUSNESS [None]
  - TRAUMATIC HAEMORRHAGE [None]
